FAERS Safety Report 25658787 (Version 1)
Quarter: 2025Q3

REPORT INFORMATION
  Report Type: Spontaneous
  Country: US (occurrence: US)
  Receive Date: 20250808
  Receipt Date: 20250808
  Transmission Date: 20251021
  Serious: Yes (Other)
  Sender: JOHNSON AND JOHNSON
  Company Number: US-JNJFOC-20250737866

PATIENT
  Age: 56 Year
  Sex: Female

DRUGS (1)
  1. TALVEY [Suspect]
     Active Substance: TALQUETAMAB-TGVS
     Indication: Product used for unknown indication
     Dates: start: 20241228

REACTIONS (3)
  - Disease progression [Unknown]
  - Ataxia [Recovering/Resolving]
  - Dysarthria [Recovering/Resolving]
